FAERS Safety Report 22034051 (Version 1)
Quarter: 2023Q1

REPORT INFORMATION
  Report Type: Spontaneous
  Country: US (occurrence: None)
  Receive Date: 20230222
  Receipt Date: 20230222
  Transmission Date: 20230417
  Serious: No
  Sender: FDA-Public Use
  Company Number: None

PATIENT
  Age: 25 Year
  Sex: Male
  Weight: 85.5 kg

DRUGS (2)
  1. METHYLPHENIDATE HYDROCHLORIDE [Suspect]
     Active Substance: METHYLPHENIDATE HYDROCHLORIDE
     Indication: Attention deficit hyperactivity disorder
     Dosage: OTHER QUANTITY : 1 TABLET(S);?
     Route: 048
     Dates: start: 20230219, end: 20230221
  2. Kirkland daily multivitamin [Concomitant]

REACTIONS (5)
  - Cluster headache [None]
  - Dyspepsia [None]
  - Blepharospasm [None]
  - Product substitution issue [None]
  - Product dosage form issue [None]

NARRATIVE: CASE EVENT DATE: 20230219
